FAERS Safety Report 17127544 (Version 8)
Quarter: 2022Q3

REPORT INFORMATION
  Report Type: Other
  Country: CA (occurrence: CA)
  Receive Date: 20191209
  Receipt Date: 20220826
  Transmission Date: 20221026
  Serious: Yes (Other)
  Sender: FDA-Public Use
  Company Number: CA-002147023-PHHY2018CA066892

PATIENT
  Age: 67 Year
  Sex: Female

DRUGS (7)
  1. XOLAIR [Suspect]
     Active Substance: OMALIZUMAB
     Indication: Chronic spontaneous urticaria
     Route: 058
     Dates: start: 20180411
  2. XOLAIR [Suspect]
     Active Substance: OMALIZUMAB
     Route: 058
     Dates: start: 20220104
  3. XOLAIR [Suspect]
     Active Substance: OMALIZUMAB
     Route: 058
  4. PREDNISONE [Suspect]
     Active Substance: PREDNISONE
     Indication: Product used for unknown indication
     Route: 048
     Dates: start: 201704
  5. CETIRIZINE HYDROCHLORIDE [Concomitant]
     Active Substance: CETIRIZINE HYDROCHLORIDE
     Indication: Product used for unknown indication
     Route: 048
     Dates: start: 201706
  6. CETIRIZINE HYDROCHLORIDE [Concomitant]
     Active Substance: CETIRIZINE HYDROCHLORIDE
     Dosage: 10-30 MG
     Route: 048
  7. ASPIRIN [Concomitant]
     Active Substance: ASPIRIN
     Indication: Product used for unknown indication
     Dosage: UNK UNK, QD

REACTIONS (8)
  - Angioedema [Unknown]
  - Swollen tongue [Unknown]
  - Pruritus [Not Recovered/Not Resolved]
  - Palpitations [Unknown]
  - Lip swelling [Unknown]
  - Urticaria [Unknown]
  - Paraesthesia oral [Unknown]
  - Headache [Unknown]

NARRATIVE: CASE EVENT DATE: 20180411
